FAERS Safety Report 7440356-9 (Version None)
Quarter: 2011Q2

REPORT INFORMATION
  Report Type: 
  Country: None (occurrence: None)
  Receive Date: 20110427
  Receipt Date: 20110421
  Transmission Date: 20111010
  Serious: Yes (Hospitalization, Disabling, Other)
  Sender: FDA-Public Use
  Company Number: US-MERCK-1007USA02362

PATIENT
  Age: 60 Year
  Sex: Female
  Weight: 53 kg

DRUGS (6)
  1. FOSAMAX [Suspect]
     Route: 048
     Dates: start: 20040101, end: 20060101
  2. FOSAMAX [Suspect]
     Indication: OSTEOPENIA
     Route: 048
     Dates: start: 20040205, end: 20040101
  3. FOSAMAX [Suspect]
     Route: 048
     Dates: start: 20020912
  4. FOSAMAX [Suspect]
     Route: 048
     Dates: start: 20040101, end: 20060101
  5. FOSAMAX [Suspect]
     Indication: OSTEOPOROSIS
     Route: 048
     Dates: start: 20040205, end: 20040101
  6. FOSAMAX [Suspect]
     Route: 048
     Dates: start: 20020912

REACTIONS (68)
  - SPINAL DISORDER [None]
  - PROCEDURAL HYPOTENSION [None]
  - HYPOTHYROIDISM [None]
  - FRACTURED COCCYX [None]
  - TEMPOROMANDIBULAR JOINT SYNDROME [None]
  - ATAXIA [None]
  - FRACTURED SACRUM [None]
  - EAR INFECTION [None]
  - TENDON DISORDER [None]
  - BURSITIS [None]
  - VITAMIN D DEFICIENCY [None]
  - URINARY TRACT INFECTION [None]
  - UPPER RESPIRATORY TRACT INFECTION [None]
  - DISTURBANCE IN ATTENTION [None]
  - OTITIS MEDIA [None]
  - CAROTID BRUIT [None]
  - ANXIETY [None]
  - SKIN ULCER [None]
  - LUMBAR SPINAL STENOSIS [None]
  - LIMB INJURY [None]
  - DIARRHOEA [None]
  - PAIN IN JAW [None]
  - HYPOACUSIS [None]
  - GANGRENE [None]
  - BONE DENSITY DECREASED [None]
  - OSTEONECROSIS OF JAW [None]
  - AORTIC OCCLUSION [None]
  - BLADDER PROLAPSE [None]
  - INTERMITTENT CLAUDICATION [None]
  - INFLUENZA [None]
  - ORAL HERPES [None]
  - VISUAL IMPAIRMENT [None]
  - POST-TRAUMATIC STRESS DISORDER [None]
  - HEADACHE [None]
  - ABSCESS ORAL [None]
  - TOOTH DISORDER [None]
  - ATROPHIC VULVOVAGINITIS [None]
  - TRANSIENT ISCHAEMIC ATTACK [None]
  - NAUSEA [None]
  - ROAD TRAFFIC ACCIDENT [None]
  - TRISMUS [None]
  - HYPERCHOLESTEROLAEMIA [None]
  - INTERVERTEBRAL DISC PROTRUSION [None]
  - BACK INJURY [None]
  - PERIPHERAL ARTERIAL OCCLUSIVE DISEASE [None]
  - MOUTH ULCERATION [None]
  - ECCHYMOSIS [None]
  - DYSPEPSIA [None]
  - APPENDIX DISORDER [None]
  - CHRONIC OBSTRUCTIVE PULMONARY DISEASE [None]
  - PROCEDURAL PAIN [None]
  - ABDOMINAL DISTENSION [None]
  - FATIGUE [None]
  - EAR PAIN [None]
  - RASH [None]
  - MIXED INCONTINENCE [None]
  - AMNESIA [None]
  - DIZZINESS [None]
  - ORTHOSTATIC HYPOTENSION [None]
  - DECREASED APPETITE [None]
  - ANAEMIA POSTOPERATIVE [None]
  - SPONDYLOLISTHESIS [None]
  - SINUS CONGESTION [None]
  - TINNITUS [None]
  - VERTIGO [None]
  - INSOMNIA [None]
  - UPPER-AIRWAY COUGH SYNDROME [None]
  - INCISIONAL HERNIA [None]
